FAERS Safety Report 12194395 (Version 1)
Quarter: 2016Q1

REPORT INFORMATION
  Report Type: Report from Study
  Country: JP (occurrence: JP)
  Receive Date: 20160321
  Receipt Date: 20160321
  Transmission Date: 20160526
  Serious: Yes (Death, Hospitalization)
  Sender: FDA-Public Use
  Company Number: JP-EISAI MEDICAL RESEARCH-EC-2016-015388

PATIENT
  Age: 51 Year
  Sex: Female
  Weight: 60 kg

DRUGS (21)
  1. AZUNOL [Concomitant]
     Active Substance: SODIUM GUALENATE
  2. MAGMITT [Concomitant]
     Active Substance: MAGNESIUM OXIDE
  3. ARCRANE [Concomitant]
  4. PL [Concomitant]
     Active Substance: ACETAMINOPHEN\CAFFEINE\PROMETHAZINE\SALICYLAMIDE
  5. HALAVEN [Suspect]
     Active Substance: ERIBULIN MESYLATE
     Indication: TUBULAR BREAST CARCINOMA
     Route: 041
     Dates: start: 20141111, end: 20141118
  6. OLMETEC [Concomitant]
     Active Substance: OLMESARTAN MEDOXOMIL
  7. TRAVELMIN [Concomitant]
     Active Substance: DIMENHYDRINATE
  8. LOXOPROFEN [Concomitant]
     Active Substance: LOXOPROFEN
  9. DEXALTIN [Concomitant]
     Active Substance: DEXAMETHASONE
  10. SP [Concomitant]
  11. CRESTOR [Concomitant]
     Active Substance: ROSUVASTATIN CALCIUM
  12. NEXIUM [Concomitant]
     Active Substance: ESOMEPRAZOLE MAGNESIUM
  13. CELECOX [Concomitant]
     Active Substance: CELECOXIB
  14. CRAVIT [Concomitant]
     Active Substance: LEVOFLOXACIN
  15. MEPTIN AIR [Concomitant]
     Active Substance: PROCATEROL HYDROCHLORIDE
  16. RANMARK [Concomitant]
     Active Substance: DENOSUMAB
  17. HALAVEN [Suspect]
     Active Substance: ERIBULIN MESYLATE
     Route: 041
     Dates: start: 20141209, end: 20141216
  18. TAPENTA [Concomitant]
     Active Substance: TAPENTADOL HYDROCHLORIDE
  19. BROTIZOLAM [Concomitant]
     Active Substance: BROTIZOLAM
  20. SINGULAIR [Concomitant]
     Active Substance: MONTELUKAST SODIUM
  21. OXINORM [Concomitant]
     Active Substance: OXYCODONE HYDROCHLORIDE

REACTIONS (2)
  - Neutropenia [Recovered/Resolved]
  - Malignant neoplasm progression [Fatal]

NARRATIVE: CASE EVENT DATE: 20141223
